FAERS Safety Report 23913466 (Version 1)
Quarter: 2024Q2

REPORT INFORMATION
  Report Type: Spontaneous
  Country: US (occurrence: US)
  Receive Date: 20240529
  Receipt Date: 20240529
  Transmission Date: 20240716
  Serious: Yes (Hospitalization, Other)
  Sender: FDA-Public Use
  Company Number: US-SA-2024SA154948

PATIENT
  Age: 77 Year
  Sex: Female

DRUGS (4)
  1. RIFAMPIN [Suspect]
     Active Substance: RIFAMPIN
     Indication: Cutaneous tuberculosis
     Dosage: UNK
  2. ISONIAZID [Suspect]
     Active Substance: ISONIAZID
     Indication: Cutaneous tuberculosis
     Dosage: UNK
  3. PYRAZINAMIDE [Suspect]
     Active Substance: PYRAZINAMIDE
     Indication: Cutaneous tuberculosis
     Dosage: UNK
  4. ETHAMBUTOL [Suspect]
     Active Substance: ETHAMBUTOL HYDROCHLORIDE
     Indication: Cutaneous tuberculosis
     Dosage: UNK

REACTIONS (13)
  - Immune reconstitution inflammatory syndrome [Recovering/Resolving]
  - Pain [Recovering/Resolving]
  - Scab [Recovering/Resolving]
  - Purulent discharge [Recovering/Resolving]
  - Necrosis [Recovering/Resolving]
  - Skin injury [Recovering/Resolving]
  - Lymphadenopathy [Recovering/Resolving]
  - Soft tissue mass [Recovering/Resolving]
  - Lung infiltration [Recovering/Resolving]
  - Disseminated tuberculosis [Recovering/Resolving]
  - Superinfection bacterial [Recovering/Resolving]
  - Pseudomonas infection [Recovering/Resolving]
  - Enterobacter infection [Recovering/Resolving]
